FAERS Safety Report 25989395 (Version 1)
Quarter: 2025Q4

REPORT INFORMATION
  Report Type: Spontaneous
  Country: US (occurrence: US)
  Receive Date: 20251103
  Receipt Date: 20251103
  Transmission Date: 20260118
  Serious: Yes (Disabling)
  Sender: ABBVIE
  Company Number: US-ABBVIE-6528402

PATIENT
  Sex: Female

DRUGS (2)
  1. SKYRIZI [Suspect]
     Active Substance: RISANKIZUMAB-RZAA
     Indication: Crohn^s disease
     Dosage: FORM STRENGTH: 360 MILLIGRAM
     Route: 058
  2. SKYRIZI [Suspect]
     Active Substance: RISANKIZUMAB-RZAA
     Indication: Colitis ulcerative
     Dosage: TIME INTERVAL: TOTAL
     Route: 042

REACTIONS (5)
  - Disability [Unknown]
  - Anxiety [Unknown]
  - Headache [Unknown]
  - Malaise [Unknown]
  - Device issue [Not Recovered/Not Resolved]
